FAERS Safety Report 9745980 (Version 1)
Quarter: 2013Q4

REPORT INFORMATION
  Report Type: Spontaneous
  Country: US (occurrence: None)
  Receive Date: 20131206
  Receipt Date: 20131206
  Transmission Date: 20140711
  Serious: Yes (Other)
  Sender: FDA-Public Use
  Company Number: None

PATIENT
  Age: 76 Year
  Sex: Female
  Weight: 45.5 kg

DRUGS (1)
  1. HYDRALAZINE [Suspect]
     Indication: HYPERTENSION
     Route: 042
     Dates: start: 20131202, end: 20131202

REACTIONS (5)
  - Pruritus [None]
  - Erythema [None]
  - Blood pressure increased [None]
  - Hypersensitivity [None]
  - Heart rate increased [None]
